FAERS Safety Report 11176626 (Version 1)
Quarter: 2015Q2

REPORT INFORMATION
  Report Type: Spontaneous
  Country: US (occurrence: None)
  Receive Date: 20150609
  Receipt Date: 20150609
  Transmission Date: 20150821
  Serious: Yes (Hospitalization)
  Sender: FDA-Public Use
  Company Number: None

PATIENT
  Age: 86 Year
  Sex: Male
  Weight: 102.9 kg

DRUGS (1)
  1. RANITIDINE [Suspect]
     Active Substance: RANITIDINE\RANITIDINE HYDROCHLORIDE
     Indication: GASTROOESOPHAGEAL REFLUX DISEASE
     Route: 048
     Dates: start: 20141031, end: 20141205

REACTIONS (4)
  - Oesophageal ulcer [None]
  - Upper gastrointestinal haemorrhage [None]
  - Pancreatitis [None]
  - Duodenal ulcer [None]

NARRATIVE: CASE EVENT DATE: 20141204
